FAERS Safety Report 7980757-3 (Version None)
Quarter: 2011Q4

REPORT INFORMATION
  Report Type: 
  Country: None (occurrence: None)
  Receive Date: 20111214
  Receipt Date: 20111202
  Transmission Date: 20120403
  Serious: Yes (Other)
  Sender: FDA-Public Use
  Company Number: GB-ELI_LILLY_AND_COMPANY-GB201111007524

PATIENT
  Sex: Female

DRUGS (2)
  1. PROZAC [Suspect]
     Indication: DEPRESSION
     Route: 065
  2. PROZAC [Suspect]
     Dosage: 40 MG, QD

REACTIONS (3)
  - INCREASED TENDENCY TO BRUISE [None]
  - PURPURA [None]
  - ECCHYMOSIS [None]
